FAERS Safety Report 8778574 (Version 1)
Quarter: 2012Q4

REPORT INFORMATION
  Report Type: 
  Country: BR (occurrence: BR)
  Receive Date: 20120906
  Receipt Date: 20120906
  Transmission Date: 20130627
  Serious: Yes (Other)
  Sender: FDA-Public Use
  Company Number: BR-ELI_LILLY_AND_COMPANY-BR201209000750

PATIENT
  Sex: Male
  Weight: 47 kg

DRUGS (5)
  1. FORTEO [Suspect]
     Indication: OSTEOPOROSIS
     Dosage: 20 ug, qd
     Route: 058
     Dates: start: 201105, end: 201201
  2. ALENIA [Concomitant]
     Indication: EMPHYSEMA
     Dosage: UNK, unknown
     Route: 065
  3. SINVASTATINA [Concomitant]
     Indication: BLOOD CHOLESTEROL
     Dosage: UNK, unknown
     Route: 065
  4. TRAMAL [Concomitant]
     Indication: PAIN
     Dosage: UNK, unknown
     Route: 065
  5. NOVALGINA [Concomitant]
     Dosage: UNK, unknown
     Route: 065

REACTIONS (1)
  - Lung neoplasm [Recovering/Resolving]
